FAERS Safety Report 4930094-6 (Version None)
Quarter: 2006Q1

REPORT INFORMATION
  Report Type: 
  Country: None (occurrence: None)
  Receive Date: 20060228
  Receipt Date: 20060215
  Transmission Date: 20060701
  Serious: Yes (Disabling)
  Sender: FDA-Public Use
  Company Number: GB-2006-002834

PATIENT
  Age: 36 Year
  Sex: Female
  Weight: 70 kg

DRUGS (1)
  1. MIRENA [Suspect]
     Indication: MENSTRUATION IRREGULAR
     Dates: start: 20051012, end: 20051123

REACTIONS (3)
  - ACNE [None]
  - ARTHRALGIA [None]
  - IMPAIRED WORK ABILITY [None]
